FAERS Safety Report 4492511-8 (Version None)
Quarter: 2004Q4

REPORT INFORMATION
  Report Type: 
  Country: None (occurrence: None)
  Receive Date: 20041029
  Receipt Date: 20041017
  Transmission Date: 20050328
  Serious: Yes (Hospitalization)
  Sender: FDA-Public Use
  Company Number: 239867

PATIENT
  Age: 12 Year
  Sex: Female
  Weight: 25.6 kg

DRUGS (1)
  1. NORDITROPIN [Suspect]
     Indication: GROWTH HORMONE DEFICIENCY
     Dosage: 0.7 MG, QD, SUBCUTANEOUS
     Route: 058
     Dates: start: 20040712, end: 20041017

REACTIONS (4)
  - BENIGN INTRACRANIAL HYPERTENSION [None]
  - CONVULSION [None]
  - ELECTROENCEPHALOGRAM ABNORMAL [None]
  - SIMPLE PARTIAL SEIZURES [None]
